FAERS Safety Report 6986599-X (Version None)
Quarter: 2010Q3

REPORT INFORMATION
  Report Type: 
  Country: None (occurrence: None)
  Receive Date: 20100827
  Receipt Date: 20100614
  Transmission Date: 20110219
  Serious: Yes (Other)
  Sender: FDA-Public Use
  Company Number: AMAG201000264

PATIENT
  Age: 44 Year
  Sex: Female
  Weight: 46 kg

DRUGS (12)
  1. FERAHEME [Suspect]
     Indication: IRON DEFICIENCY ANAEMIA
     Dosage: 510MG, SINGLE, INTRAVENOUS
     Route: 042
     Dates: start: 20100408, end: 20100408
  2. ALPRAZOLAM [Concomitant]
  3. AMBIEN [Concomitant]
  4. CALCITROL (CALCIUM CARBONATE, ERGOCALCIFEROL, RENTINOL) [Concomitant]
  5. DOXEPIN HCL [Concomitant]
  6. FOLATE (FOLIC ACID) [Concomitant]
  7. LANTHANUM CARBONATE (LANTHANUM CARBONATE) [Concomitant]
  8. GABAPENTIN [Concomitant]
  9. PRILOSEC (OMEPRAZOLE) [Concomitant]
  10. MULTIVITAMINS PLUS IRON (FERROUS SULFATE, VITAMINS NOS) [Concomitant]
  11. NEPHROCAPS (ASCORBIC ACID, BIOTIN, CYANOCOBALAMIN, FOLIC ACID, NICOTIN [Concomitant]
  12. HEPARIN [Concomitant]

REACTIONS (4)
  - ANAPHYLACTOID REACTION [None]
  - PARAESTHESIA [None]
  - PRURITUS GENERALISED [None]
  - THROAT TIGHTNESS [None]
